FAERS Safety Report 6526659-0 (Version None)
Quarter: 2009Q4

REPORT INFORMATION
  Report Type: 
  Country: None (occurrence: None)
  Receive Date: 20091230
  Receipt Date: 20091221
  Transmission Date: 20100525
  Serious: Yes (Death)
  Sender: FDA-Public Use
  Company Number: ALL1-2009-04103

PATIENT
  Age: 45 Year
  Sex: Male

DRUGS (3)
  1. FOSRENOL [Suspect]
     Indication: HYPERPHOSPHATAEMIA
     Dosage: SEE IMAGE
     Route: 048
     Dates: start: 20070720
  2. FOSRENOL [Suspect]
     Indication: HYPERPHOSPHATAEMIA
     Dosage: SEE IMAGE
     Route: 048
     Dates: start: 20090827
  3. FOSRENOL [Suspect]
     Dosage: 500 MG, 2X/DAY:BID, ORAL
     Route: 048
     Dates: start: 20070720

REACTIONS (1)
  - UNEVALUABLE EVENT [None]
